FAERS Safety Report 11780447 (Version 1)
Quarter: 2015Q4

REPORT INFORMATION
  Report Type: Spontaneous
  Country: US (occurrence: US)
  Receive Date: 20151126
  Receipt Date: 20151126
  Transmission Date: 20160305
  Serious: Yes (Death, Hospitalization)
  Sender: FDA-Public Use
  Company Number: US-009507513-1511USA013413

PATIENT
  Age: 76 Year
  Sex: Male

DRUGS (3)
  1. MACROBID [Concomitant]
     Active Substance: NITROFURANTOIN\NITROFURANTOIN MONOHYDRATE
  2. NITRO-DUR [Concomitant]
     Active Substance: NITROGLYCERIN
  3. NOXAFIL [Suspect]
     Active Substance: POSACONAZOLE
     Dosage: 300 MG, QD
     Route: 048
     Dates: start: 20150724

REACTIONS (1)
  - Death [Fatal]

NARRATIVE: CASE EVENT DATE: 20151013
